FAERS Safety Report 18868871 (Version 1)
Quarter: 2021Q1

REPORT INFORMATION
  Report Type: Spontaneous
  Country: CA (occurrence: CA)
  Receive Date: 20210209
  Receipt Date: 20210209
  Transmission Date: 20210420
  Serious: Yes (Hospitalization)
  Sender: FDA-Public Use
  Company Number: CA-PFIZER INC-2021111636

PATIENT
  Age: 1 Year
  Sex: Male
  Weight: 10 kg

DRUGS (43)
  1. CISPLATIN. [Suspect]
     Active Substance: CISPLATIN
     Dosage: 45 MG
     Route: 042
  2. DEXAMETHASONE. [Concomitant]
     Active Substance: DEXAMETHASONE
     Route: 065
  3. FILGRASTIM [Concomitant]
     Active Substance: FILGRASTIM
  4. GABAPENTIN. [Concomitant]
     Active Substance: GABAPENTIN
  5. HYDROMORPHONE [Concomitant]
     Active Substance: HYDROMORPHONE
  6. MYCAMINE [Concomitant]
     Active Substance: MICAFUNGIN SODIUM
  7. POTASSIUM [Concomitant]
     Active Substance: POTASSIUM
  8. VINCRISTINE SULFATE. [Suspect]
     Active Substance: VINCRISTINE SULFATE
     Dosage: 0.7 MG
     Route: 042
  9. ACYCLOVIR [ACICLOVIR] [Concomitant]
     Active Substance: ACYCLOVIR
  10. LANSOPRAZOLE. [Concomitant]
     Active Substance: LANSOPRAZOLE
  11. MELATONIN [Concomitant]
     Active Substance: MELATONIN
  12. CISPLATIN. [Suspect]
     Active Substance: CISPLATIN
     Dosage: 45 MG
     Route: 042
  13. DOXORUBICIN HCL [Suspect]
     Active Substance: DOXORUBICIN HYDROCHLORIDE
     Dosage: 14 MG
     Route: 042
  14. HEPARIN CALCIUM [Concomitant]
     Active Substance: HEPARIN CALCIUM
  15. MAGNESIUM [Concomitant]
     Active Substance: MAGNESIUM
  16. PYRIDOXINE [Concomitant]
     Active Substance: PYRIDOXINE
  17. TRIMETHOPRIM SULFAMETHOXAZOLE [Concomitant]
     Active Substance: SULFAMETHOXAZOLE\TRIMETHOPRIM
  18. FLUOROURACIL. [Suspect]
     Active Substance: FLUOROURACIL
     Indication: HEPATOBLASTOMA
     Dosage: 270 MG
     Route: 042
  19. HYDROXYZINE [Concomitant]
     Active Substance: HYDROXYZINE HYDROCHLORIDE
  20. PYRIDOSTIGMINE BROMIDE. [Concomitant]
     Active Substance: PYRIDOSTIGMINE BROMIDE
  21. VANCOMYCIN [Concomitant]
     Active Substance: VANCOMYCIN
  22. ZINECARD [Concomitant]
     Active Substance: DEXRAZOXANE HYDROCHLORIDE
  23. CISPLATIN. [Suspect]
     Active Substance: CISPLATIN
     Indication: HEPATOBLASTOMA
     Dosage: 47 MG
     Route: 042
  24. ACETAMINOPHEN. [Concomitant]
     Active Substance: ACETAMINOPHEN
  25. CHOLECALCIFEROL [Concomitant]
     Active Substance: CHOLECALCIFEROL
  26. DIPHENHYDRAMINE. [Concomitant]
     Active Substance: DIPHENHYDRAMINE
  27. OLANZAPINE. [Concomitant]
     Active Substance: OLANZAPINE
  28. PANTOPRAZOLE [Concomitant]
     Active Substance: PANTOPRAZOLE
  29. SODIUM [Concomitant]
     Active Substance: SODIUM
  30. SPIRONOLACTONE. [Concomitant]
     Active Substance: SPIRONOLACTONE
  31. DOXORUBICIN HCL [Suspect]
     Active Substance: DOXORUBICIN HYDROCHLORIDE
     Indication: HEPATOBLASTOMA
     Dosage: 9.4 MG
     Route: 042
  32. AMILORIDE HYDROCHLORIDE. [Concomitant]
     Active Substance: AMILORIDE HYDROCHLORIDE
  33. AMLODIPINE [Concomitant]
     Active Substance: AMLODIPINE BESYLATE
  34. AMOXICILLIN. [Concomitant]
     Active Substance: AMOXICILLIN
  35. FLUOROURACIL. [Suspect]
     Active Substance: FLUOROURACIL
     Dosage: 280 MG
     Route: 042
  36. VINCRISTINE SULFATE. [Suspect]
     Active Substance: VINCRISTINE SULFATE
     Indication: HEPATOBLASTOMA
     Dosage: 0.25 MG
     Route: 042
  37. VINCRISTINE SULFATE. [Suspect]
     Active Substance: VINCRISTINE SULFATE
     Dosage: 0.24 MG
     Route: 042
  38. VINCRISTINE SULFATE. [Suspect]
     Active Substance: VINCRISTINE SULFATE
     Dosage: 0.7 MG
     Route: 042
  39. DOXORUBICIN HCL [Suspect]
     Active Substance: DOXORUBICIN HYDROCHLORIDE
     Dosage: 10 MG
     Route: 042
  40. CLONIDINE. [Concomitant]
     Active Substance: CLONIDINE
  41. EMEND [Concomitant]
     Active Substance: APREPITANT
  42. NIFEDIPINE. [Concomitant]
     Active Substance: NIFEDIPINE
  43. PIPERACILLIN AND TAZOBACTAM [Concomitant]
     Active Substance: PIPERACILLIN SODIUM\TAZOBACTAM SODIUM

REACTIONS (6)
  - Stomatitis [Recovered/Resolved]
  - Nausea [Recovered/Resolved]
  - Nephropathy toxic [Recovered/Resolved]
  - Eyelid ptosis [Recovered/Resolved]
  - Inappropriate antidiuretic hormone secretion [Recovered/Resolved]
  - Renal tubular disorder [Recovered/Resolved]
